FAERS Safety Report 7269750-6 (Version None)
Quarter: 2011Q1

REPORT INFORMATION
  Report Type: 
  Country: None (occurrence: None)
  Receive Date: 20110202
  Receipt Date: 20110127
  Transmission Date: 20110831
  Serious: Yes (Other)
  Sender: FDA-Public Use
  Company Number: US-PFIZER INC-2011020102

PATIENT
  Sex: Female
  Weight: 91.156 kg

DRUGS (3)
  1. CHANTIX [Suspect]
     Indication: SMOKING CESSATION THERAPY
     Dosage: 0.5 MG, DAILY
     Route: 048
     Dates: start: 20110101, end: 20110127
  2. SEROQUEL [Concomitant]
     Indication: DEPRESSION
     Dosage: UNK
  3. CELEXA [Concomitant]
     Indication: DEPRESSION
     Dosage: 200 MG, DAILY

REACTIONS (2)
  - DEPRESSION [None]
  - BIPOLAR DISORDER [None]
